FAERS Safety Report 24256214 (Version 1)
Quarter: 2024Q3

REPORT INFORMATION
  Report Type: Spontaneous
  Country: DE (occurrence: DE)
  Receive Date: 20240827
  Receipt Date: 20240827
  Transmission Date: 20241017
  Serious: Yes (Death, Hospitalization, Other)
  Sender: BRISTOL MYERS SQUIBB
  Company Number: DE-BRISTOL-MYERS SQUIBB COMPANY-2024-093506

PATIENT
  Age: 89 Year
  Sex: Female

DRUGS (17)
  1. ELIQUIS [Suspect]
     Active Substance: APIXABAN
     Indication: Atrial fibrillation
     Dates: start: 20210209
  2. BUPRENORPHINE [Concomitant]
     Active Substance: BUPRENORPHINE
     Dosage: 5 ?G/HOUR PATCH 3-0-0 (LAST CHANGED ON 19-JUN-2024)
     Dates: start: 202406
  3. METAMIZOLE [Concomitant]
     Active Substance: METAMIZOLE
     Dosage: 1 X 1 UP TO 4 TIMES DAILY AS NEEDED
  4. ALLOPURINOL [Concomitant]
     Active Substance: ALLOPURINOL
  5. ATORVASTATIN [Concomitant]
     Active Substance: ATORVASTATIN
  6. LACTULOSE [Concomitant]
     Active Substance: LACTULOSE
  7. BISOPROLOL [Concomitant]
     Active Substance: BISOPROLOL\BISOPROLOL FUMARATE
  8. CANDESARTAN [Concomitant]
     Active Substance: CANDESARTAN
  9. MODIP [FELODIPINE] [Concomitant]
  10. PANTOPRAZOLE [Concomitant]
     Active Substance: PANTOPRAZOLE
  11. PENTAERYTHRITOL TETRANITRATE [Concomitant]
     Active Substance: PENTAERYTHRITOL TETRANITRATE
  12. XIPAMIDE [Concomitant]
     Active Substance: XIPAMIDE
  13. TORSEMIDE [Concomitant]
     Active Substance: TORSEMIDE
  14. DULOXETINE [Concomitant]
     Active Substance: DULOXETINE
  15. ACTRAPID [Concomitant]
     Active Substance: INSULIN HUMAN
     Dosage: 4-6-4 IU
  16. DIGITOXIN [Concomitant]
     Active Substance: DIGITOXIN
     Dosage: MONDAY TO FRIDAY WEEKEND PAUSE
  17. BENSERAZIDE\LEVODOPA [Concomitant]
     Active Substance: BENSERAZIDE\LEVODOPA

REACTIONS (6)
  - Upper gastrointestinal haemorrhage [Fatal]
  - Gastrointestinal polyp haemorrhage [Fatal]
  - Urinary tract infection [Unknown]
  - Diverticulum intestinal haemorrhagic [Unknown]
  - Colon cancer [Unknown]
  - Pleural effusion [Unknown]

NARRATIVE: CASE EVENT DATE: 20240601
